FAERS Safety Report 21494126 (Version 1)
Quarter: 2022Q4

REPORT INFORMATION
  Report Type: Spontaneous
  Country: US (occurrence: None)
  Receive Date: 20221021
  Receipt Date: 20221021
  Transmission Date: 20230113
  Serious: Yes (Other)
  Sender: FDA-Public Use
  Company Number: None

PATIENT
  Age: 75 Year
  Sex: Male
  Weight: 112.5 kg

DRUGS (1)
  1. BYDUREON [Suspect]
     Active Substance: EXENATIDE
     Indication: Diabetes mellitus

REACTIONS (6)
  - Swelling [None]
  - Injection site nodule [None]
  - Administration site wound [None]
  - Injection site haemorrhage [None]
  - Injection site rash [None]
  - Gangrene [None]

NARRATIVE: CASE EVENT DATE: 20220926
